FAERS Safety Report 18218149 (Version 1)
Quarter: 2020Q3

REPORT INFORMATION
  Report Type: Spontaneous
  Country: US (occurrence: US)
  Receive Date: 20200901
  Receipt Date: 20200901
  Transmission Date: 20201103
  Serious: No
  Sender: FDA-Public Use
  Company Number: US-MYLANLABS-2020M1072988

PATIENT
  Sex: Male

DRUGS (2)
  1. ABREVA [Concomitant]
     Active Substance: DOCOSANOL
     Dosage: UNK
     Route: 061
  2. VALACYCLOVIR [Suspect]
     Active Substance: VALACYCLOVIR HYDROCHLORIDE
     Indication: ORAL HERPES
     Dosage: 1 DOSAGE FORM, BID, FOR 3 TO 4 DAYS
     Route: 048

REACTIONS (1)
  - Off label use [Not Recovered/Not Resolved]
